FAERS Safety Report 5441507-8 (Version None)
Quarter: 2007Q3

REPORT INFORMATION
  Report Type: 
  Country: None (occurrence: None)
  Receive Date: 20070829
  Receipt Date: 20070820
  Transmission Date: 20080115
  Serious: Yes (Other)
  Sender: FDA-Public Use
  Company Number: S07-USA-03158-01

PATIENT
  Age: 26 Year
  Sex: Female

DRUGS (4)
  1. CERVIDIL [Suspect]
  2. CHITOSAN [Concomitant]
  3. ISOTRIM (SUPPLEMENT) [Concomitant]
  4. VITAPAK (NOS) [Concomitant]

REACTIONS (5)
  - AMNIOCENTESIS ABNORMAL [None]
  - DRUG EXPOSURE DURING PREGNANCY [None]
  - HEART RATE INCREASED [None]
  - PREGNANCY ON ORAL CONTRACEPTIVE [None]
  - RUBELLA IN PREGNANCY [None]
